FAERS Safety Report 14155820 (Version 1)
Quarter: 2017Q4

REPORT INFORMATION
  Report Type: Spontaneous
  Country: IT (occurrence: IT)
  Receive Date: 20171103
  Receipt Date: 20171103
  Transmission Date: 20180321
  Serious: Yes (Hospitalization)
  Sender: FDA-Public Use
  Company Number: IT-JNJFOC-20120404828

PATIENT
  Age: 16 Year
  Sex: Female

DRUGS (4)
  1. BISACODYL. [Suspect]
     Active Substance: BISACODYL
     Indication: SUICIDE ATTEMPT
     Route: 048
     Dates: start: 20111009, end: 20111009
  2. CLARITHROMYCIN. [Suspect]
     Active Substance: CLARITHROMYCIN
     Indication: SUICIDE ATTEMPT
     Route: 048
     Dates: start: 20111009, end: 20111009
  3. PARACETAMOL [Suspect]
     Active Substance: ACETAMINOPHEN
     Indication: SUICIDE ATTEMPT
     Route: 048
     Dates: start: 20111009, end: 20111009
  4. IBUPROFEN. [Suspect]
     Active Substance: IBUPROFEN
     Indication: SUICIDE ATTEMPT
     Route: 048
     Dates: start: 20111009, end: 20111009

REACTIONS (3)
  - Vomiting [Recovering/Resolving]
  - Hypotension [Recovering/Resolving]
  - Abdominal pain upper [Recovering/Resolving]

NARRATIVE: CASE EVENT DATE: 20111009
